FAERS Safety Report 25264490 (Version 1)
Quarter: 2025Q2

REPORT INFORMATION
  Report Type: Report from Study
  Country: GB (occurrence: GB)
  Receive Date: 20250502
  Receipt Date: 20250502
  Transmission Date: 20250716
  Serious: Yes (Other)
  Sender: ABBVIE
  Company Number: GB-ABBVIE-6261135

PATIENT
  Age: 22 Year
  Sex: Female

DRUGS (1)
  1. SKYRIZI [Suspect]
     Active Substance: RISANKIZUMAB-RZAA
     Indication: Crohn^s disease
     Route: 058
     Dates: end: 20250429

REACTIONS (4)
  - Intestinal operation [Unknown]
  - Impaired healing [Not Recovered/Not Resolved]
  - Sepsis [Unknown]
  - Rectal injury [Not Recovered/Not Resolved]

NARRATIVE: CASE EVENT DATE: 20250101
